FAERS Safety Report 10267350 (Version 1)
Quarter: 2014Q2

REPORT INFORMATION
  Report Type: Spontaneous
  Country: DE (occurrence: DE)
  Receive Date: 20140630
  Receipt Date: 20140630
  Transmission Date: 20141212
  Serious: Yes (Other)
  Sender: FDA-Public Use
  Company Number: PHHY2014DE079707

PATIENT
  Sex: Female

DRUGS (5)
  1. TASIGNA [Suspect]
     Indication: GASTROINTESTINAL STROMAL TUMOUR
     Dosage: 150 MG, DAILY
  2. TASIGNA [Suspect]
     Indication: OFF LABEL USE
  3. PRADAXA [Concomitant]
     Dosage: 150 MG, UNK
  4. CLOPIDOGREL [Concomitant]
     Dosage: 75 MG, UNK
  5. ACETYLSALICYLIC ACID [Concomitant]

REACTIONS (6)
  - Coagulopathy [Unknown]
  - Haematoma [Unknown]
  - Haemorrhage [Unknown]
  - Activated partial thromboplastin time prolonged [Unknown]
  - Prothrombin time prolonged [Unknown]
  - Bleeding time prolonged [Unknown]
